FAERS Safety Report 20714003 (Version 1)
Quarter: 2022Q2

REPORT INFORMATION
  Report Type: Spontaneous
  Country: US (occurrence: None)
  Receive Date: 20220415
  Receipt Date: 20220415
  Transmission Date: 20220721
  Serious: Yes (Hospitalization)
  Sender: FDA-Public Use
  Company Number: 2022A147175

PATIENT
  Sex: Male
  Weight: 79.4 kg

DRUGS (1)
  1. BRILINTA [Suspect]
     Active Substance: TICAGRELOR
     Indication: Stent placement
     Route: 048
     Dates: start: 20220303

REACTIONS (8)
  - Cardiac dysfunction [Unknown]
  - Haematoma [Unknown]
  - Dyspnoea [Unknown]
  - Swelling [Unknown]
  - Device malfunction [Unknown]
  - Chest pain [Unknown]
  - Cardiac disorder [Unknown]
  - Chest discomfort [Unknown]
